FAERS Safety Report 4308995-1 (Version None)
Quarter: 2004Q1

REPORT INFORMATION
  Report Type: 
  Country: None (occurrence: None)
  Receive Date: 20040227
  Receipt Date: 20040220
  Transmission Date: 20041129
  Serious: Yes (Other)
  Sender: FDA-Public Use
  Company Number: 2004198887JP

PATIENT
  Age: 33 Year
  Sex: Male

DRUGS (1)
  1. LINCOCIN [Suspect]

REACTIONS (2)
  - LIVER DISORDER [None]
  - TOXIC EPIDERMAL NECROLYSIS [None]
